FAERS Safety Report 10574514 (Version 1)
Quarter: 2014Q4

REPORT INFORMATION
  Report Type: Spontaneous
  Country: JP (occurrence: JP)
  Receive Date: 20141110
  Receipt Date: 20141110
  Transmission Date: 20150529
  Serious: Yes (Life-Threatening, Hospitalization, Other)
  Sender: FDA-Public Use
  Company Number: JP-ASTRAZENECA-2014SE84918

PATIENT
  Age: 21 Year
  Sex: Female
  Weight: 70 kg

DRUGS (8)
  1. ANTIPARKINSONIAN DRUG [Suspect]
     Active Substance: UNSPECIFIED INGREDIENT
     Dosage: 46 TABLETS
     Dates: start: 20141101
  2. NEUROPSYCHIATRIC AGENT [Suspect]
     Active Substance: UNSPECIFIED INGREDIENT
     Dosage: 40 MG X 13 CAPSULES
     Dates: start: 20141101
  3. ANTIANXIETY [Suspect]
     Active Substance: UNSPECIFIED INGREDIENT
     Dosage: 0.4 MG X 6 TABLETS
     Dates: start: 20141101
  4. HYPNOTIC AGENT [Suspect]
     Active Substance: UNSPECIFIED INGREDIENT
     Dates: start: 20141101
  5. SEROQUEL [Suspect]
     Active Substance: QUETIAPINE FUMARATE
     Indication: SUICIDE ATTEMPT
     Route: 048
     Dates: start: 20141101
  6. ANTIDEPRESSANT [Suspect]
     Active Substance: UNSPECIFIED INGREDIENT
     Dosage: 25 MG X 69 TABLETS
     Dates: start: 20141101
  7. ANTIANXIETY [Suspect]
     Active Substance: UNSPECIFIED INGREDIENT
     Dosage: 5 MG X 3 TABLETS
     Dates: start: 20141101
  8. ANTIPYRETIC ANALGESICS [Suspect]
     Active Substance: UNSPECIFIED INGREDIENT
     Dates: start: 20141101

REACTIONS (4)
  - Intentional overdose [Unknown]
  - Altered state of consciousness [Unknown]
  - Suicide attempt [Unknown]
  - Blood gases abnormal [Unknown]

NARRATIVE: CASE EVENT DATE: 20141101
